FAERS Safety Report 9150686 (Version 1)
Quarter: 2013Q1

REPORT INFORMATION
  Report Type: Spontaneous
  Country: TR (occurrence: TR)
  Receive Date: 20130308
  Receipt Date: 20130308
  Transmission Date: 20140127
  Serious: Yes (Hospitalization, Other)
  Sender: FDA-Public Use
  Company Number: TR-009507513-1303TUR002912

PATIENT
  Age: 19 Year
  Sex: Female
  Weight: 50 kg

DRUGS (1)
  1. JANUMET [Suspect]
     Dosage: UNK
     Dates: start: 20130305, end: 20130305

REACTIONS (3)
  - Suicide attempt [Recovered/Resolved]
  - Intentional overdose [Unknown]
  - No adverse event [Unknown]
